FAERS Safety Report 16119010 (Version 2)
Quarter: 2019Q2

REPORT INFORMATION
  Report Type: Report from Study
  Country: None (occurrence: TR)
  Receive Date: 20190326
  Receipt Date: 20190401
  Transmission Date: 20190711
  Serious: Yes (Hospitalization)
  Sender: FDA-Public Use
  Company Number: TR-ABBVIE-19S-161-2714494-00

PATIENT
  Age: 70 Year
  Sex: Female
  Weight: 60 kg

DRUGS (6)
  1. PAXIL [Concomitant]
     Active Substance: PAROXETINE HYDROCHLORIDE
     Indication: PARKINSON^S DISEASE
     Route: 048
  2. MOTILIUM [Concomitant]
     Active Substance: DOMPERIDONE
     Indication: PARKINSON^S DISEASE
     Dosage: 3X2
     Route: 048
  3. KETYA [Concomitant]
     Indication: PARKINSON^S DISEASE
     Route: 048
  4. PROTONEX [Concomitant]
     Indication: PROPHYLAXIS
     Route: 048
  5. DUODOPA [Suspect]
     Active Substance: CARBIDOPA\LEVODOPA
     Indication: PARKINSON^S DISEASE
     Dosage: MD(ML): 0,00, CD(ML): 4,20, ED (ML):1,00
     Route: 050
     Dates: start: 20190311, end: 20190322
  6. DUODOPA [Suspect]
     Active Substance: CARBIDOPA\LEVODOPA
     Dosage: MD(ML): 3,00, CD(ML): 1,00, ED (ML):2,60
     Route: 050
     Dates: start: 20190326

REACTIONS (5)
  - C-reactive protein increased [Recovering/Resolving]
  - Fungal infection [Not Recovered/Not Resolved]
  - Device dislocation [Recovered/Resolved]
  - Stoma site erythema [Recovering/Resolving]
  - Bradykinesia [Not Recovered/Not Resolved]

NARRATIVE: CASE EVENT DATE: 20190317
